FAERS Safety Report 13786782 (Version 1)
Quarter: 2017Q3

REPORT INFORMATION
  Report Type: Spontaneous
  Country: US (occurrence: US)
  Receive Date: 20170725
  Receipt Date: 20170725
  Transmission Date: 20171127
  Serious: Yes (Other)
  Sender: FDA-Public Use
  Company Number: None

PATIENT
  Age: 56 Year
  Sex: Female
  Weight: 81 kg

DRUGS (7)
  1. IBUPROFEN. [Concomitant]
     Active Substance: IBUPROFEN
  2. OXYCODONE [Suspect]
     Active Substance: OXYCODONE
     Indication: PAIN
  3. SIMVASTATIN. [Concomitant]
     Active Substance: SIMVASTATIN
  4. AMBIEN [Concomitant]
     Active Substance: ZOLPIDEM TARTRATE
  5. NEFEDIPINE [Concomitant]
  6. OXYCODONE [Concomitant]
     Active Substance: OXYCODONE
  7. PREMPRO [Concomitant]
     Active Substance: ESTROGENS, CONJUGATED\MEDROXYPROGESTERONE ACETATE

REACTIONS (3)
  - Drug effect decreased [None]
  - Insomnia [None]
  - Product quality issue [None]

NARRATIVE: CASE EVENT DATE: 20160104
